FAERS Safety Report 9800425 (Version 1)
Quarter: 2014Q1

REPORT INFORMATION
  Report Type: Spontaneous
  Country: FR (occurrence: FR)
  Receive Date: 20140107
  Receipt Date: 20140107
  Transmission Date: 20141002
  Serious: Yes (Hospitalization)
  Sender: FDA-Public Use
  Company Number: FR-ROCHE-1329503

PATIENT
  Age: 24 Year
  Sex: Male

DRUGS (1)
  1. ACTILYSE [Suspect]
     Indication: THROMBOLYSIS
     Route: 042
     Dates: start: 20131015, end: 20131015

REACTIONS (4)
  - Cerebral haematoma [Recovered/Resolved with Sequelae]
  - Hemiplegia [Recovered/Resolved with Sequelae]
  - Aphasia [Recovered/Resolved with Sequelae]
  - Condition aggravated [Recovered/Resolved with Sequelae]
